FAERS Safety Report 17088174 (Version 9)
Quarter: 2020Q3

REPORT INFORMATION
  Report Type: Spontaneous
  Country: CA (occurrence: CA)
  Receive Date: 20191128
  Receipt Date: 20200918
  Transmission Date: 20201102
  Serious: Yes (Other)
  Sender: FDA-Public Use
  Company Number: CA-CELLTRION INC.-2019CA021159

PATIENT

DRUGS (11)
  1. INFLECTRA [Suspect]
     Active Substance: INFLIXIMAB-DYYB
     Dosage: 5 MG/KG, 0, 1, 5 WEEKS THEN EVERY 8 WEEKS
     Route: 042
     Dates: start: 20190724, end: 20190724
  2. CALCIUM [Concomitant]
     Active Substance: CALCIUM
     Dosage: UNK
     Route: 065
  3. INFLECTRA [Suspect]
     Active Substance: INFLIXIMAB-DYYB
     Indication: CROHN^S DISEASE
     Dosage: 5 MG/KG, 0, 1, 5 WEEKS THEN EVERY 8 WEEKS (HOSPITAL START)
     Route: 042
     Dates: start: 20190425, end: 20190425
  4. INFLECTRA [Suspect]
     Active Substance: INFLIXIMAB-DYYB
     Dosage: 5 MG/KG, 0, 1, 5 WEEKS THEN EVERY 8 WEEKS
     Route: 042
     Dates: start: 20190918, end: 20190918
  5. INFLECTRA [Suspect]
     Active Substance: INFLIXIMAB-DYYB
     Dosage: 5 MG/KG, 0, 1, 5 WEEKS THEN EVERY 8 WEEKS
     Route: 042
     Dates: start: 20200219, end: 20200219
  6. INFLECTRA [Suspect]
     Active Substance: INFLIXIMAB-DYYB
     Dosage: 5 MG/KG, 0, 1, 5 WEEKS THEN EVERY 8 WEEKS
     Route: 042
     Dates: start: 20190502, end: 20190502
  7. PREDNISONE. [Concomitant]
     Active Substance: PREDNISONE
     Dosage: UNK (DECREASING DOSE)
     Route: 065
  8. INFLECTRA [Suspect]
     Active Substance: INFLIXIMAB-DYYB
     Dosage: 5 MG/KG, 0, 1, 5 WEEKS THEN EVERY 8 WEEKS
     Route: 042
     Dates: start: 20200805, end: 20200805
  9. INFLECTRA [Suspect]
     Active Substance: INFLIXIMAB-DYYB
     Dosage: 5 MG/KG, 0, 1, 5 WEEKS THEN EVERY 8 WEEKS
     Route: 042
     Dates: start: 20200415, end: 20200415
  10. INFLECTRA [Suspect]
     Active Substance: INFLIXIMAB-DYYB
     Dosage: 5 MG/KG, 0, 1, 5 WEEKS THEN EVERY 8 WEEKS
     Route: 042
     Dates: start: 20200610, end: 20200610
  11. INFLECTRA [Suspect]
     Active Substance: INFLIXIMAB-DYYB
     Dosage: 5 MG/KG, 0, 1, 5 WEEKS THEN EVERY 8 WEEKS
     Route: 042
     Dates: start: 20191113, end: 20200109

REACTIONS (12)
  - Fatigue [Not Recovered/Not Resolved]
  - Product use issue [Unknown]
  - Hypertension [Unknown]
  - Sleep apnoea syndrome [Not Recovered/Not Resolved]
  - Flatulence [Unknown]
  - Weight decreased [Recovering/Resolving]
  - Insomnia [Not Recovered/Not Resolved]
  - Hepatic enzyme increased [Unknown]
  - Off label use [Unknown]
  - Blood pressure fluctuation [Unknown]
  - Intentional product use issue [Unknown]
  - Hepatitis [Unknown]

NARRATIVE: CASE EVENT DATE: 20190425
